FAERS Safety Report 5141812-9 (Version None)
Quarter: 2006Q4

REPORT INFORMATION
  Report Type: 
  Country: None (occurrence: None)
  Receive Date: 20061027
  Receipt Date: 20061017
  Transmission Date: 20070319
  Serious: Yes (Hospitalization, Other)
  Sender: FDA-Public Use
  Company Number: 2006097264

PATIENT
  Age: 52 Year
  Sex: Female
  Weight: 49 kg

DRUGS (2)
  1. LYRICA [Suspect]
     Indication: COMPLEX REGIONAL PAIN SYNDROME
     Dosage: 250 MG (DAILY), ORAL
     Route: 048
     Dates: start: 20050901, end: 20051102
  2. LEVOTHYROXINE SODIUM [Concomitant]

REACTIONS (5)
  - DIZZINESS [None]
  - FALL [None]
  - FATIGUE [None]
  - FEMORAL NECK FRACTURE [None]
  - SYNCOPE [None]
